FAERS Safety Report 25523730 (Version 2)
Quarter: 2025Q3

REPORT INFORMATION
  Report Type: Spontaneous
  Country: US (occurrence: US)
  Receive Date: 20250707
  Receipt Date: 20250728
  Transmission Date: 20251020
  Serious: No
  Sender: CALLIDITAS THERAPEUTICS AB
  Company Number: US-Calliditas-2025CAL01838

PATIENT
  Age: 48 Year
  Sex: Male

DRUGS (12)
  1. TARPEYO [Suspect]
     Active Substance: BUDESONIDE
     Indication: IgA nephropathy
     Dosage: 16MG (4MG CAPSULES) ONCE DAILY
     Route: 048
     Dates: start: 20250512
  2. AMLODIPINE [Concomitant]
     Active Substance: AMLODIPINE BESYLATE
  3. ASPIRIN [Concomitant]
     Active Substance: ASPIRIN
  4. CARVEDILOL [Concomitant]
     Active Substance: CARVEDILOL
  5. DORZOLAMIDE [Concomitant]
     Active Substance: DORZOLAMIDE
  6. FARXIGA [Concomitant]
     Active Substance: DAPAGLIFLOZIN PROPANEDIOL
  7. FILSPARI [Concomitant]
     Active Substance: SPARSENTAN
  8. FUROSEMIDE [Concomitant]
     Active Substance: FUROSEMIDE
  9. HYDRALAZINE [Concomitant]
     Active Substance: HYDRALAZINE HYDROCHLORIDE
  10. LATANOPROST [Concomitant]
     Active Substance: LATANOPROST
  11. ROCKLATAN [Concomitant]
     Active Substance: LATANOPROST\NETARSUDIL MESYLATE
  12. SEMAGLUTIDE [Concomitant]
     Active Substance: SEMAGLUTIDE

REACTIONS (3)
  - Blood pressure increased [Not Recovered/Not Resolved]
  - Asthenia [Unknown]
  - Muscle atrophy [Unknown]

NARRATIVE: CASE EVENT DATE: 20250611
